FAERS Safety Report 11228901 (Version 1)
Quarter: 2015Q2

REPORT INFORMATION
  Report Type: Spontaneous
  Country: IT (occurrence: IT)
  Receive Date: 20150630
  Receipt Date: 20150630
  Transmission Date: 20150821
  Serious: Yes (Death, Other)
  Sender: FDA-Public Use
  Company Number: IT-CELGENE-083-50794-14010258

PATIENT

DRUGS (2)
  1. AZACITIDINE. [Suspect]
     Active Substance: AZACITIDINE
     Indication: MYELOPROLIFERATIVE DISORDER
     Route: 065
  2. AZACITIDINE. [Suspect]
     Active Substance: AZACITIDINE
     Route: 065

REACTIONS (5)
  - Gastric cancer [Fatal]
  - Haematotoxicity [Unknown]
  - Myeloproliferative disorder [Unknown]
  - Pyrexia [Unknown]
  - Disease recurrence [Unknown]
